FAERS Safety Report 24322411 (Version 2)
Quarter: 2024Q4

REPORT INFORMATION
  Report Type: Spontaneous
  Country: CH (occurrence: CH)
  Receive Date: 20240916
  Receipt Date: 20241003
  Transmission Date: 20250115
  Serious: No
  Sender: CSL BEHRING
  Company Number: CH-BEH-2024177682

PATIENT

DRUGS (1)
  1. PRIVIGEN [Suspect]
     Active Substance: HUMAN IMMUNOGLOBULIN G
     Indication: Von Willebrand^s disease
     Dosage: UNK
     Route: 065

REACTIONS (1)
  - Off label use [Unknown]
